FAERS Safety Report 21028551 (Version 4)
Quarter: 2024Q1

REPORT INFORMATION
  Report Type: Other
  Country: US (occurrence: None)
  Receive Date: 20220630
  Receipt Date: 20240117
  Transmission Date: 20240410
  Serious: Yes (Other)
  Sender: FDA-Public Use
  Company Number: US-ROCHE-3127806

PATIENT
  Age: 87 Year
  Sex: Female

DRUGS (5)
  1. ACTEMRA [Suspect]
     Active Substance: TOCILIZUMAB
     Indication: Giant cell arteritis
     Route: 058
  2. ACTEMRA [Suspect]
     Active Substance: TOCILIZUMAB
  3. ACTEMRA [Suspect]
     Active Substance: TOCILIZUMAB
  4. ACTEMRA [Suspect]
     Active Substance: TOCILIZUMAB
     Indication: Giant cell arteritis
     Dosage: INJECT 0.9ML (162MG) SUBCUTANEOUSLY
     Route: 058
  5. ACTEMRA [Suspect]
     Active Substance: TOCILIZUMAB

REACTIONS (5)
  - Hip fracture [Unknown]
  - Fall [Unknown]
  - Arthritis [Unknown]
  - Orthosis user [Unknown]
  - Arterial injury [Unknown]
